FAERS Safety Report 7205456-7 (Version None)
Quarter: 2010Q4

REPORT INFORMATION
  Report Type: 
  Country: None (occurrence: None)
  Receive Date: 20101231
  Receipt Date: 20101228
  Transmission Date: 20110411
  Serious: Yes (Death, Hospitalization)
  Sender: FDA-Public Use
  Company Number: PHHY2010US73858

PATIENT
  Sex: Female
  Weight: 85.44 kg

DRUGS (21)
  1. EXJADE [Suspect]
     Indication: MYELODYSPLASTIC SYNDROME
     Dosage: 1500 MG/DAY
     Route: 048
     Dates: start: 20090501, end: 20101114
  2. EXJADE [Suspect]
     Dosage: UNK
  3. LANOXIN [Concomitant]
  4. MIRALAX [Concomitant]
  5. SENOKOT                                 /UNK/ [Concomitant]
  6. OXYCONTIN [Concomitant]
  7. ANALGESICS [Concomitant]
  8. VICODIN [Concomitant]
  9. CEPHALOSPORINES [Concomitant]
  10. BLOOD CELLS, PACKED HUMAN [Concomitant]
  11. METOLAZONE [Concomitant]
  12. POTASSIUM CHLORIDE [Concomitant]
  13. FUROSEMIDE [Concomitant]
  14. OMNICEF [Concomitant]
  15. LANTUS [Concomitant]
  16. CARVEDILOL [Concomitant]
  17. VITAMIN D [Concomitant]
  18. ZOSYN [Concomitant]
  19. CIPRO [Concomitant]
  20. VANCOMYCIN [Concomitant]
  21. CEFEPIME [Concomitant]

REACTIONS (20)
  - ACUTE MYELOID LEUKAEMIA [None]
  - ATRIAL FIBRILLATION [None]
  - CANDIDIASIS [None]
  - CARDIAC FAILURE CONGESTIVE [None]
  - CONSTIPATION [None]
  - DIABETES MELLITUS [None]
  - DRUG DOSE OMISSION [None]
  - FALL [None]
  - HAEMOGLOBIN DECREASED [None]
  - HYPOTENSION [None]
  - IRON OVERLOAD [None]
  - LEUKOCYTOSIS [None]
  - PLATELET COUNT DECREASED [None]
  - PNEUMONIA [None]
  - PYREXIA [None]
  - RENAL FAILURE ACUTE [None]
  - SEPSIS [None]
  - UPPER LIMB FRACTURE [None]
  - URINARY TRACT INFECTION [None]
  - URINE ANALYSIS ABNORMAL [None]
